FAERS Safety Report 7236109-7 (Version None)
Quarter: 2011Q1

REPORT INFORMATION
  Report Type: 
  Country: None (occurrence: None)
  Receive Date: 20110110
  Receipt Date: 20101229
  Transmission Date: 20110831
  Serious: Yes (Other)
  Sender: FDA-Public Use
  Company Number: 023072

PATIENT
  Sex: Female
  Weight: 57.2 kg

DRUGS (1)
  1. CIMZIA [Suspect]
     Indication: CROHN'S DISEASE
     Dosage: (400 MG 1X/4 WEEKS SUBCUTANEOUS
     Route: 058
     Dates: start: 20091024

REACTIONS (5)
  - HAEMOGLOBIN DECREASED [None]
  - LARGE INTESTINAL ULCER [None]
  - LARGE INTESTINAL HAEMORRHAGE [None]
  - HAEMATOCRIT DECREASED [None]
  - BLOOD UREA DECREASED [None]
